FAERS Safety Report 13381484 (Version 1)
Quarter: 2017Q1

REPORT INFORMATION
  Report Type: Spontaneous
  Country: CN (occurrence: CN)
  Receive Date: 20170329
  Receipt Date: 20170329
  Transmission Date: 20170429
  Serious: Yes (Life-Threatening, Hospitalization, Other)
  Sender: FDA-Public Use
  Company Number: CN-SUN PHARMACEUTICAL INDUSTRIES LTD-2017RR-136561

PATIENT
  Age: 63 Year
  Sex: Male

DRUGS (11)
  1. DEXAMETHASONE. [Suspect]
     Active Substance: DEXAMETHASONE
     Indication: PLASMA CELL MYELOMA
     Dosage: DAYS 1 TO 4
     Route: 065
     Dates: start: 201012, end: 201103
  2. BORTEZOMIB [Suspect]
     Active Substance: BORTEZOMIB
     Indication: PLASMA CELL MYELOMA
     Dosage: DAYS 1, 4, 8 AND 13
     Route: 065
     Dates: start: 201012, end: 201103
  3. THALIDOMIDE [Suspect]
     Active Substance: THALIDOMIDE
     Dosage: 200 MG, UNK
     Route: 065
     Dates: start: 201110
  4. GLUCOPHAGE [Concomitant]
     Active Substance: METFORMIN HYDROCHLORIDE
     Indication: DIABETES MELLITUS
     Dosage: 0.5 G, TID
     Route: 065
  5. LEVEMIR [Concomitant]
     Active Substance: INSULIN DETEMIR
     Indication: DIABETES MELLITUS
     Dosage: QM
     Route: 065
  6. THALIDOMIDE [Suspect]
     Active Substance: THALIDOMIDE
     Indication: PLASMA CELL MYELOMA
     Dosage: 200 MG, UNK
     Route: 065
     Dates: start: 20110901
  7. NORVASC [Concomitant]
     Active Substance: AMLODIPINE BESYLATE
     Indication: HYPERTENSION
     Dosage: 5 MG, QD
     Route: 065
  8. DEXAMETHASONE. [Suspect]
     Active Substance: DEXAMETHASONE
     Dosage: DAYS 1 TO 4
     Route: 065
     Dates: start: 20110901
  9. DOXORUBICIN [Suspect]
     Active Substance: DOXORUBICIN
     Indication: PLASMA CELL MYELOMA
     Dosage: DAY 4
     Route: 065
     Dates: start: 201012, end: 201103
  10. NOVONORM [Concomitant]
     Active Substance: REPAGLINIDE
     Indication: DIABETES MELLITUS
     Dosage: 1 MG, TID
     Route: 065
  11. BORTEZOMIB [Suspect]
     Active Substance: BORTEZOMIB
     Dosage: DAYS 1, 4, 8 AND 13
     Route: 065
     Dates: start: 20110901

REACTIONS (1)
  - Acute lymphocytic leukaemia [Unknown]
